FAERS Safety Report 14877650 (Version 1)
Quarter: 2018Q2

REPORT INFORMATION
  Report Type: Report from Study
  Country: US (occurrence: US)
  Receive Date: 20180510
  Receipt Date: 20180510
  Transmission Date: 20180711
  Serious: Yes (Other)
  Sender: FDA-Public Use
  Company Number: US-B.I. PHARMACEUTICALS,INC./RIDGEFIELD-2018-BI-025034

PATIENT
  Age: 50 Year
  Sex: Female

DRUGS (7)
  1. CARBIDOPA/ LEVODOPA [Concomitant]
     Active Substance: CARBIDOPA\LEVODOPA
     Indication: PRODUCT USED FOR UNKNOWN INDICATION
     Dosage: 25MG/100 MG 4 TIMES DAILY AND 1.5 TABLETS ONCE DAILY.
     Route: 065
  2. CARBIDOPA/ LEVODOPA [Concomitant]
     Active Substance: CARBIDOPA\LEVODOPA
     Dosage: 1.5 TABLETS OF 25MG/100 MG
     Route: 065
  3. CARBIDOPA/ LEVODOPA [Concomitant]
     Active Substance: CARBIDOPA\LEVODOPA
     Dosage: CONTROLLED RELEASE 25MG/100MG
     Route: 065
  4. CARBIDOPA/ LEVODOPA [Concomitant]
     Active Substance: CARBIDOPA\LEVODOPA
     Dosage: 25MG/100 MG CONTROLLED RELEASED TABLET
     Route: 065
  5. CARBIDOPA/ LEVODOPA [Concomitant]
     Active Substance: CARBIDOPA\LEVODOPA
     Dosage: 25MG/100 MG 5 TIMES DAILY AND 1.5 TABLETS ONCE DAILY.
     Route: 065
  6. SIFROL [Suspect]
     Active Substance: PRAMIPEXOLE
     Indication: PARKINSON^S DISEASE
     Route: 065
  7. SIFROL [Suspect]
     Active Substance: PRAMIPEXOLE
     Route: 065

REACTIONS (6)
  - Wound decomposition [Unknown]
  - Wound infection [Unknown]
  - Delusion of replacement [Recovered/Resolved]
  - Cognitive disorder [Unknown]
  - Insomnia [Unknown]
  - Disturbance in attention [Unknown]
